FAERS Safety Report 7511527-8 (Version None)
Quarter: 2011Q2

REPORT INFORMATION
  Report Type: 
  Country: None (occurrence: None)
  Receive Date: 20110531
  Receipt Date: 20110525
  Transmission Date: 20111010
  Serious: Yes (Other)
  Sender: FDA-Public Use
  Company Number: US-AMGEN-USASP2011019134

PATIENT
  Age: 87 Year
  Sex: Male

DRUGS (1)
  1. NPLATE [Suspect]
     Indication: IDIOPATHIC THROMBOCYTOPENIC PURPURA
     Dosage: 2.17 A?G/KG, UNK
     Dates: start: 20100923, end: 20101110

REACTIONS (5)
  - ANISOCYTOSIS [None]
  - THROMBOCYTOPENIA [None]
  - POIKILOCYTOSIS [None]
  - BIOPSY BONE MARROW ABNORMAL [None]
  - PLATELET COUNT DECREASED [None]
